FAERS Safety Report 7463392-5 (Version None)
Quarter: 2011Q2

REPORT INFORMATION
  Report Type: 
  Country: None (occurrence: None)
  Receive Date: 20110506
  Receipt Date: 20110427
  Transmission Date: 20111010
  Serious: Yes (Death, Hospitalization)
  Sender: FDA-Public Use
  Company Number: A0924759A

PATIENT
  Age: 68 Year
  Sex: Male

DRUGS (2)
  1. AVANDIA [Suspect]
     Dosage: 1TAB PER DAY
     Route: 048
  2. METFORMIN [Concomitant]

REACTIONS (3)
  - NEOPLASM MALIGNANT [None]
  - PNEUMONIA [None]
  - ENDOTRACHEAL INTUBATION [None]
